FAERS Safety Report 17201477 (Version 1)
Quarter: 2020Q1

REPORT INFORMATION
  Report Type: Spontaneous
  Country: US (occurrence: US)
  Receive Date: 20191224
  Receipt Date: 20191224
  Transmission Date: 20200409
  Serious: Yes (Hospitalization)
  Sender: FDA-Public Use
  Company Number: None

PATIENT
  Sex: Male

DRUGS (5)
  1. AZATHIOPRINE INJ 100MG [Concomitant]
     Dates: start: 20190503
  2. CIMZIA [Suspect]
     Active Substance: CERTOLIZUMAB PEGOL
     Indication: CROHN^S DISEASE
     Dosage: ?          OTHER FREQUENCY:EVERY 2 WEEKS;?
     Route: 058
     Dates: start: 20190507
  3. PREDNISONE TAB 10MG [Concomitant]
     Active Substance: PREDNISONE
     Dates: start: 20190503
  4. BACTRIM TAB 400-80MG [Concomitant]
     Dates: start: 20190503
  5. ALOPURINOL TAB 300MG [Concomitant]
     Dates: start: 20121121

REACTIONS (1)
  - Abscess [None]
